FAERS Safety Report 7557089-0 (Version None)
Quarter: 2011Q2

REPORT INFORMATION
  Report Type: 
  Country: None (occurrence: None)
  Receive Date: 20110620
  Receipt Date: 20110616
  Transmission Date: 20111010
  Serious: Yes (Other)
  Sender: FDA-Public Use
  Company Number: JP-PFIZER INC-2011125395

PATIENT
  Age: 68 Year
  Sex: Female

DRUGS (5)
  1. MYONAL [Concomitant]
  2. NEUROTROPIN [Concomitant]
  3. LYRICA [Suspect]
     Dosage: 75MG DAILY
     Route: 048
  4. LOXONIN [Concomitant]
     Dosage: UNK
  5. MUCOSTA [Concomitant]

REACTIONS (2)
  - SOMNOLENCE [None]
  - INTRAOCULAR PRESSURE INCREASED [None]
